FAERS Safety Report 5242161-0 (Version None)
Quarter: 2007Q1

REPORT INFORMATION
  Report Type: 
  Country: None (occurrence: None)
  Receive Date: 20070213
  Receipt Date: 20070130
  Transmission Date: 20070707
  Serious: Yes (Death)
  Sender: FDA-Public Use
  Company Number: 2007P1000089

PATIENT
  Age: 38 Year
  Sex: Male

DRUGS (2)
  1. RETEPLASE [Suspect]
     Indication: CEREBROVASCULAR ACCIDENT
     Dosage: IART
     Route: 013
  2. ABCIXIMAB [Suspect]
     Indication: CEREBROVASCULAR ACCIDENT
     Dosage: SEE IMAGE

REACTIONS (4)
  - BRAIN HERNIATION [None]
  - BRAIN OEDEMA [None]
  - ISCHAEMIC STROKE [None]
  - NEUROLOGICAL SYMPTOM [None]
